FAERS Safety Report 5283397-2 (Version None)
Quarter: 2007Q2

REPORT INFORMATION
  Report Type: 
  Country: None (occurrence: None)
  Receive Date: 20070402
  Receipt Date: 20070322
  Transmission Date: 20071010
  Serious: Yes (Hospitalization)
  Sender: FDA-Public Use
  Company Number: FR-AVENTIS-200710428FR

PATIENT
  Age: 92 Year
  Sex: Male
  Weight: 73 kg

DRUGS (9)
  1. LOVENOX [Suspect]
     Route: 058
     Dates: end: 20061222
  2. BACTRIM DS [Concomitant]
     Route: 048
     Dates: start: 20061205, end: 20061223
  3. OMEPRAZOLE [Concomitant]
     Route: 048
  4. DOLIPRANE [Concomitant]
     Route: 048
  5. LASILIX                            /00032601/ [Concomitant]
     Route: 048
  6. PROSCAR [Concomitant]
     Route: 048
  7. NITRODERM [Concomitant]
  8. MIXTARD 30 NOVOLET [Concomitant]
  9. ATARAX                             /00058402/ [Concomitant]

REACTIONS (5)
  - ANAEMIA [None]
  - HAEMATOMA [None]
  - HYPOTENSION [None]
  - OVERDOSE [None]
  - SYNCOPE [None]
